FAERS Safety Report 10223394 (Version 1)
Quarter: 2014Q2

REPORT INFORMATION
  Report Type: Spontaneous
  Country: FR (occurrence: FR)
  Receive Date: 20140609
  Receipt Date: 20140609
  Transmission Date: 20141212
  Serious: Yes (Hospitalization)
  Sender: FDA-Public Use
  Company Number: FR-ROCHE-1414272

PATIENT
  Age: 54 Year
  Sex: Female

DRUGS (1)
  1. PERJETA [Suspect]
     Indication: BREAST CANCER
     Route: 042
     Dates: start: 20140520

REACTIONS (7)
  - Malaise [Unknown]
  - Tachycardia [Unknown]
  - Dyspnoea [Unknown]
  - Hypotension [Unknown]
  - Pyrexia [Unknown]
  - Headache [Unknown]
  - Tinnitus [Unknown]
